FAERS Safety Report 5573022-5 (Version None)
Quarter: 2007Q4

REPORT INFORMATION
  Report Type: 
  Country: None (occurrence: None)
  Receive Date: 20071224
  Receipt Date: 20071213
  Transmission Date: 20080405
  Serious: Yes (Other)
  Sender: FDA-Public Use
  Company Number: JP-JNJFOC-20071108777

PATIENT
  Sex: Female
  Weight: 78 kg

DRUGS (10)
  1. ITRIZOLE [Suspect]
     Indication: TINEA PEDIS
     Route: 048
  2. MYSLEE [Suspect]
     Indication: INSOMNIA
     Route: 048
  3. SALICYLAMIDE [Concomitant]
     Indication: BRONCHOPNEUMONIA
     Route: 048
  4. DIOVAN [Concomitant]
     Indication: HYPERTENSION
     Route: 048
  5. PRAVASTATIN SODIUM [Concomitant]
     Indication: HYPERLIPIDAEMIA
     Route: 048
  6. RISEDRONATE SODIUM [Concomitant]
     Indication: OSTEOPOROSIS
     Route: 048
  7. CLARITHROMYCIN [Concomitant]
     Indication: BRONCHOPNEUMONIA
     Route: 048
  8. METHISTA [Concomitant]
     Indication: BRONCHOPNEUMONIA
     Route: 048
  9. SP [Concomitant]
     Route: 048
  10. NISOLDIPINE [Concomitant]
     Indication: HYPERTENSION
     Route: 048

REACTIONS (1)
  - MEMORY IMPAIRMENT [None]
